FAERS Safety Report 9295172 (Version 6)
Quarter: 2015Q3

REPORT INFORMATION
  Report Type: Report from Study
  Country: TW (occurrence: TW)
  Receive Date: 20130517
  Receipt Date: 20150814
  Transmission Date: 20151125
  Serious: Yes (Death, Hospitalization, Other)
  Sender: FDA-Public Use
  Company Number: PHHY2013TW046081

PATIENT
  Age: 69 Year
  Sex: Male
  Weight: 56.1 kg

DRUGS (34)
  1. ZOLEDRONATE [Suspect]
     Active Substance: ZOLEDRONIC ACID
     Indication: METASTASES TO BONE
     Dosage: 4 MG, UNK
     Route: 042
     Dates: start: 20121106, end: 20130430
  2. BORTEZOMIB [Concomitant]
     Active Substance: BORTEZOMIB
     Dosage: 2.1 MG, UNK
     Route: 065
     Dates: start: 20120713
  3. BORTEZOMIB [Concomitant]
     Active Substance: BORTEZOMIB
     Dosage: 2.1 MG, UNK
     Route: 065
     Dates: start: 20120528
  4. DIPHENIDOL [Concomitant]
     Active Substance: DIPHENIDOL
     Indication: NAUSEA
  5. BORTEZOMIB [Concomitant]
     Active Substance: BORTEZOMIB
     Dosage: 1.9 MG, UNK
     Route: 065
     Dates: start: 20130523
  6. ZOLEDRONATE [Suspect]
     Active Substance: ZOLEDRONIC ACID
     Indication: PLASMA CELL MYELOMA
  7. BORTEZOMIB [Concomitant]
     Active Substance: BORTEZOMIB
     Dosage: 2.1 MG, UNK
     Route: 065
     Dates: start: 20120803
  8. BORTEZOMIB [Concomitant]
     Active Substance: BORTEZOMIB
     Dosage: 2.1 MG, UNK
     Route: 065
     Dates: start: 20120821
  9. THALIDOMIDE [Concomitant]
     Active Substance: THALIDOMIDE
     Indication: PLASMA CELL MYELOMA
     Dosage: 100 MG, UNK
     Route: 065
     Dates: start: 20120531, end: 20120618
  10. BORTEZOMIB [Concomitant]
     Active Substance: BORTEZOMIB
     Dosage: 2.1 MG, UNK
     Route: 065
     Dates: start: 20120629
  11. BORTEZOMIB [Concomitant]
     Active Substance: BORTEZOMIB
     Dosage: 2.1 MG, UNK
     Route: 065
     Dates: start: 20120710
  12. BORTEZOMIB [Concomitant]
     Active Substance: BORTEZOMIB
     Dosage: 2.1 MG, UNK
     Route: 065
     Dates: start: 20120810
  13. BORTEZOMIB [Concomitant]
     Active Substance: BORTEZOMIB
     Dosage: 1.9 MG, UNK
     Route: 065
     Dates: start: 20130513
  14. BORTEZOMIB [Concomitant]
     Active Substance: BORTEZOMIB
     Dosage: 1.9 MG, UNK
     Route: 065
     Dates: start: 20130516
  15. BORTEZOMIB [Concomitant]
     Active Substance: BORTEZOMIB
     Dosage: 2.1 MG, UNK
     Route: 065
     Dates: start: 20120717
  16. BORTEZOMIB [Concomitant]
     Active Substance: BORTEZOMIB
     Dosage: 2.1 MG, UNK
     Route: 065
     Dates: start: 20120824
  17. DEXAM//DEXAMETHASONE [Concomitant]
     Active Substance: DEXAMETHASONE
     Indication: PRODUCT USED FOR UNKNOWN INDICATION
     Dosage: 2 OT, Q2H
     Route: 065
     Dates: start: 20130523
  18. BROWN MIXTURE                      /01682301/ [Concomitant]
     Indication: COUGH
     Dosage: 10 ML, UNK
     Route: 048
     Dates: start: 20130423, end: 20130506
  19. DIPHENIDOL [Concomitant]
     Active Substance: DIPHENIDOL
     Indication: VERTIGO
     Dosage: 25 MG, UNK
     Route: 048
     Dates: start: 20130430, end: 20130506
  20. BORTEZOMIB [Concomitant]
     Active Substance: BORTEZOMIB
     Dosage: 2.1 MG, UNK
     Route: 065
     Dates: start: 20120622
  21. BORTEZOMIB [Concomitant]
     Active Substance: BORTEZOMIB
     Dosage: 2.1 MG, UNK
     Route: 065
     Dates: start: 20120626
  22. MAGNESIUM OXIDE. [Concomitant]
     Active Substance: MAGNESIUM OXIDE
     Indication: ANTACID THERAPY
     Dosage: 250 MG, UNK
     Route: 048
     Dates: start: 20130430, end: 20130513
  23. MELPHALAN [Concomitant]
     Active Substance: MELPHALAN
     Indication: PLASMA CELL MYELOMA
     Dosage: 4 MG, UNK
     Route: 065
     Dates: start: 20120531, end: 20120603
  24. BORTEZOMIB [Concomitant]
     Active Substance: BORTEZOMIB
     Dosage: 2.1 MG, UNK
     Route: 065
     Dates: start: 20120731
  25. BORTEZOMIB [Concomitant]
     Active Substance: BORTEZOMIB
     Dosage: 2.1 MG, UNK
     Route: 065
     Dates: start: 20120807
  26. BORTEZOMIB [Concomitant]
     Active Substance: BORTEZOMIB
     Dosage: 2.1 MG, UNK
     Route: 065
     Dates: start: 20120831
  27. BORTEZOMIB [Concomitant]
     Active Substance: BORTEZOMIB
     Dosage: 1.9 MG, UNK
     Route: 065
     Dates: start: 20130520
  28. DIPHENIDOL [Concomitant]
     Active Substance: DIPHENIDOL
     Indication: VOMITING
  29. MELPHALAN [Concomitant]
     Active Substance: MELPHALAN
     Dosage: 4 MG, UNK
     Route: 065
     Dates: start: 201210, end: 201304
  30. BORTEZOMIB [Concomitant]
     Active Substance: BORTEZOMIB
     Indication: PLASMA CELL MYELOMA
     Dosage: 2.1 MG, UNK
     Route: 065
     Dates: start: 20120619
  31. BORTEZOMIB [Concomitant]
     Active Substance: BORTEZOMIB
     Dosage: 2.1 MG, UNK
     Route: 065
     Dates: start: 20120720
  32. MANNITOL. [Concomitant]
     Active Substance: MANNITOL
     Indication: PRODUCT USED FOR UNKNOWN INDICATION
     Dosage: 75 ML, Q2H
     Route: 065
  33. COBAMAMIDE [Concomitant]
     Active Substance: COBAMAMIDE
     Indication: VITAMIN B12 DEFICIENCY
     Dosage: 250 UG, UNK
     Route: 048
     Dates: start: 20130108, end: 20130524
  34. COTRIMOXAZOLE [Concomitant]
     Active Substance: SULFAMETHOXAZOLE\TRIMETHOPRIM
     Indication: BRONCHITIS
     Dosage: 480 MG, UNK
     Route: 048
     Dates: start: 20130430, end: 20130506

REACTIONS (30)
  - Loss of consciousness [Fatal]
  - Bone pain [Unknown]
  - Vomiting [Recovered/Resolved]
  - Malaise [Recovered/Resolved]
  - Metastases to bone [Unknown]
  - Altered state of consciousness [Unknown]
  - Sputum discoloured [Recovered/Resolved]
  - Muscular weakness [Unknown]
  - Cough [Recovered/Resolved]
  - Light chain analysis increased [Unknown]
  - Nucleated red cells [Unknown]
  - Myelocyte count increased [Unknown]
  - Shock [Recovered/Resolved]
  - Cerebral haemorrhage [Fatal]
  - General physical health deterioration [Fatal]
  - Thrombocytopenia [Recovered/Resolved]
  - Disease recurrence [Recovered/Resolved]
  - Coma [Recovered/Resolved]
  - Aspartate aminotransferase increased [Unknown]
  - Blood immunoglobulin G increased [Unknown]
  - Dizziness [Unknown]
  - Subdural haematoma [Fatal]
  - Plasma cell myeloma [Unknown]
  - Cachexia [Unknown]
  - Alanine aminotransferase increased [Unknown]
  - Osteolysis [Recovered/Resolved]
  - Malignant neoplasm progression [Unknown]
  - Red cell distribution width increased [Recovered/Resolved]
  - Lymphocyte count decreased [Unknown]
  - Vertigo [Recovered/Resolved]

NARRATIVE: CASE EVENT DATE: 20130305
